FAERS Safety Report 8130559-2 (Version None)
Quarter: 2012Q1

REPORT INFORMATION
  Report Type: 
  Country: None (occurrence: None)
  Receive Date: 20120211
  Receipt Date: 20120131
  Transmission Date: 20120608
  Serious: Yes (Hospitalization)
  Sender: FDA-Public Use
  Company Number: DE-TEVA-317716GER

PATIENT
  Sex: Female
  Weight: 93 kg

DRUGS (8)
  1. PACLITAXEL [Suspect]
     Indication: BREAST CANCER
     Route: 042
     Dates: start: 20111012, end: 20120110
  2. PACLITAXEL [Suspect]
     Route: 042
     Dates: start: 20120201
  3. DOXORUBICIN HCL [Suspect]
     Route: 042
     Dates: start: 20120201
  4. DOXORUBICIN HCL [Suspect]
     Indication: BREAST CANCER
     Route: 042
     Dates: start: 20111012, end: 20120110
  5. CARBOPLATIN [Suspect]
     Indication: BREAST CANCER
     Route: 042
     Dates: start: 20111012, end: 20120110
  6. MICARDIS [Concomitant]
  7. BEVACIZUMAB [Suspect]
     Indication: BREAST CANCER
     Dosage: D1 Q22
     Route: 042
     Dates: start: 20111012, end: 20120110
  8. CARBOPLATIN [Suspect]
     Route: 042
     Dates: start: 20120201

REACTIONS (3)
  - VOMITING [None]
  - FATIGUE [None]
  - SYNCOPE [None]
